FAERS Safety Report 18044248 (Version 1)
Quarter: 2020Q3

REPORT INFORMATION
  Report Type: Spontaneous
  Country: US (occurrence: US)
  Receive Date: 20200720
  Receipt Date: 20200720
  Transmission Date: 20201103
  Serious: Yes (Other)
  Sender: FDA-Public Use
  Company Number: US-BAYER-2020-137506

PATIENT
  Age: 73 Year
  Sex: Female

DRUGS (1)
  1. STIVARGA [Suspect]
     Active Substance: REGORAFENIB
     Indication: GASTRIC CANCER
     Dosage: 80 MG, QD
     Route: 048
     Dates: start: 20200701

REACTIONS (8)
  - Oropharyngeal candidiasis [None]
  - Odynophagia [Recovering/Resolving]
  - Pharyngeal swelling [None]
  - Gastrointestinal tube insertion [None]
  - Oropharyngeal pain [Recovering/Resolving]
  - Product use in unapproved indication [None]
  - Dysphagia [Recovering/Resolving]
  - Off label use [None]

NARRATIVE: CASE EVENT DATE: 20200701
